FAERS Safety Report 16577921 (Version 2)
Quarter: 2019Q3

REPORT INFORMATION
  Report Type: Spontaneous
  Country: US (occurrence: US)
  Receive Date: 20190716
  Receipt Date: 20190826
  Transmission Date: 20191004
  Serious: No
  Sender: FDA-Public Use
  Company Number: US-PFIZER INC-2019299001

PATIENT
  Age: 65 Year
  Sex: Female
  Weight: 88 kg

DRUGS (1)
  1. FESOTERODINE [Suspect]
     Active Substance: FESOTERODINE
     Indication: INCONTINENCE
     Dosage: 8 MG, 1X/DAY
     Dates: start: 201701

REACTIONS (1)
  - Drug ineffective [Not Recovered/Not Resolved]
